FAERS Safety Report 11490860 (Version 1)
Quarter: 2015Q3

REPORT INFORMATION
  Report Type: Spontaneous
  Country: US (occurrence: US)
  Receive Date: 20150910
  Receipt Date: 20150910
  Transmission Date: 20151125
  Serious: Yes (Other)
  Sender: FDA-Public Use
  Company Number: US-PFIZER INC-2015292325

PATIENT

DRUGS (1)
  1. LYRICA [Suspect]
     Active Substance: PREGABALIN
     Indication: LYME DISEASE
     Dosage: UNK

REACTIONS (11)
  - Irritability [Unknown]
  - Pain [Unknown]
  - Product use issue [Unknown]
  - Tremor [Unknown]
  - Nausea [Unknown]
  - Depression [Unknown]
  - Drug withdrawal syndrome [Unknown]
  - Migraine [Unknown]
  - Feeling abnormal [Unknown]
  - Drug dependence [Unknown]
  - Restless legs syndrome [Unknown]
